FAERS Safety Report 6602447-1 (Version None)
Quarter: 2010Q1

REPORT INFORMATION
  Report Type: 
  Country: None (occurrence: None)
  Receive Date: 20100225
  Receipt Date: 20100218
  Transmission Date: 20100710
  Serious: Yes (Hospitalization)
  Sender: FDA-Public Use
  Company Number: US-GILEAD-2010-0027195

PATIENT
  Sex: Female

DRUGS (4)
  1. LETAIRIS [Suspect]
     Indication: PULMONARY ARTERIAL HYPERTENSION
     Route: 048
     Dates: start: 20091119, end: 20100217
  2. COUMADIN [Concomitant]
     Dates: start: 20090417
  3. LASIX [Concomitant]
     Dates: start: 20090417
  4. ALLOPURINOL [Concomitant]
     Indication: GOUT
     Dates: start: 20090417

REACTIONS (1)
  - CELLULITIS [None]
